FAERS Safety Report 8149478 (Version 4)
Quarter: 2014Q1

REPORT INFORMATION
  Report Type: Report from Study
  Country: US (occurrence: US)
  Receive Date: 20110922
  Receipt Date: 20140131
  Transmission Date: 20141002
  Serious: Yes (Other)
  Sender: FDA-Public Use
  Company Number: US-ROCHE-790556

PATIENT
  Age: 81 Year
  Sex: Female

DRUGS (1)
  1. BEVACIZUMAB [Suspect]
     Indication: AGE-RELATED MACULAR DEGENERATION
     Dosage: FREQUENCY:ONCE
     Route: 050

REACTIONS (10)
  - Endophthalmitis [Recovering/Resolving]
  - Blindness unilateral [Unknown]
  - Iritis [Unknown]
  - Cyclitis [Unknown]
  - Vitritis [Unknown]
  - Choroiditis [Unknown]
  - Corneal scar [Unknown]
  - Necrotising retinitis [Unknown]
  - Product quality issue [Unknown]
  - Off label use [Unknown]
